FAERS Safety Report 22946925 (Version 6)
Quarter: 2024Q4

REPORT INFORMATION
  Report Type: Spontaneous
  Country: NL (occurrence: NL)
  Receive Date: 20230915
  Receipt Date: 20241024
  Transmission Date: 20250114
  Serious: Yes (Life-Threatening, Hospitalization, Other)
  Sender: MERCK
  Company Number: None

PATIENT
  Age: 11 Year
  Sex: Male
  Weight: 66 kg

DRUGS (11)
  1. ROCURONIUM BROMIDE [Suspect]
     Active Substance: ROCURONIUM BROMIDE
     Indication: General anaesthesia
     Dosage: 1MG/KG
     Dates: start: 20230302
  2. SUGAMMADEX SODIUM [Suspect]
     Active Substance: SUGAMMADEX SODIUM
     Indication: Neuromuscular blockade
     Dosage: 2MG/KG
     Dates: start: 20230302
  3. SEVOFLURANE [Concomitant]
     Active Substance: SEVOFLURANE
     Dosage: INHALATION GAS
  4. DICLOFENAC SODIUM [Concomitant]
     Active Substance: DICLOFENAC SODIUM
     Dosage: INJECTION FLUID, 25 MG/ML (MILLIGRAM PER MILLILITER)
  5. DICLOFENAC SODIUM [Concomitant]
     Active Substance: DICLOFENAC SODIUM
     Dosage: (DICLOFENAC SODIUM SOLUTION FOR INJECTION 25MG/ML / BRAND NAME NOT SPECIFIED) DOSAGE TEXT: SOLUTION
     Route: 065
  6. PROPOFOL [Concomitant]
     Active Substance: PROPOFOL
     Dosage: EMULSION FOR INJECTION, 10 MG/ML (MILLIGRAM PER MILLILITER)
  7. PROPOFOL [Concomitant]
     Active Substance: PROPOFOL
     Dosage: (PROPOFOL EMULSION FOR INJECTION 10MG/ML/ BRAND NAME NOT SPECIFIED) DOSAGE TEXT: EMULSION FOR INJECT
     Route: 065
  8. ACETAMINOPHEN [Concomitant]
     Active Substance: ACETAMINOPHEN
     Dosage: INFUSION FLUID, 10 MG/ML (MILLIGRAM PER MILLILITER)
  9. ACETAMINOPHEN [Concomitant]
     Active Substance: ACETAMINOPHEN
     Dosage: (PARACETAMOL SOLUTION FOR INFUSION 10MG/ML / BRAND NAME NOT SPECIFIED) DOSAGE TEXT: SOLUTION FOR INF
     Route: 065
  10. SEVOFLURANE [Concomitant]
     Active Substance: SEVOFLURANE
     Dosage: (SEVOFLURANE INHALATION LIQUID/GAS/ BRAND NAME NOT SPECIFIED) DOSAGE TEXT: INHALATION GAS
     Route: 065
  11. MORPHINE [Concomitant]
     Active Substance: MORPHINE
     Dosage: (MORPHINE SOLUTION FOR INJECTION 1MG/ML/ BRAND NAME NOT SPECIFIED)
     Route: 065

REACTIONS (5)
  - Anaphylactic reaction [Recovered/Resolved]
  - Hypotension [Recovered/Resolved]
  - Tachycardia [Recovered/Resolved]
  - Bronchospasm [Recovered/Resolved]
  - Erythema [Recovered/Resolved]
